FAERS Safety Report 7786423-1 (Version None)
Quarter: 2011Q3

REPORT INFORMATION
  Report Type: 
  Country: None (occurrence: None)
  Receive Date: 20110927
  Receipt Date: 20110927
  Transmission Date: 20111222
  Serious: Yes (Other)
  Sender: FDA-Public Use
  Company Number: None

PATIENT
  Age: 61 Year
  Sex: Female
  Weight: 79.3795 kg

DRUGS (1)
  1. TRAZODONE HCL [Suspect]
     Indication: DEPRESSION
     Dosage: 150MG 1 @ BEDTIME
     Dates: start: 20110810, end: 20110831

REACTIONS (2)
  - TREATMENT FAILURE [None]
  - PRODUCT QUALITY ISSUE [None]
